FAERS Safety Report 8074113-X (Version None)
Quarter: 2011Q4

REPORT INFORMATION
  Report Type: 
  Country: None (occurrence: None)
  Receive Date: 20111221
  Receipt Date: 20110517
  Transmission Date: 20120403
  Serious: Yes (Other)
  Sender: FDA-Public Use
  Company Number: PHHY2011US21584

PATIENT
  Age: 41 Year
  Sex: Female
  Weight: 81.5 kg

DRUGS (11)
  1. ACYCLOVIR [Concomitant]
  2. MULTIVITAMINS (ASCORBIC ACID, ERGOCALCIFEROL, FOLIC ACID, NICOTINAMIDE [Concomitant]
  3. AMBIEN [Concomitant]
  4. ECULIZUMAB (ECULIZUMAB) [Concomitant]
  5. MEGACE [Concomitant]
  6. NEUPOGEN [Concomitant]
  7. EMLA [Concomitant]
  8. EXJADE [Suspect]
     Indication: IRON OVERLOAD
     Dosage: 2000 MG, QD, ORAL
     Route: 048
     Dates: start: 20100829
  9. EXJADE [Suspect]
     Indication: HAEMOLYTIC ANAEMIA
     Dosage: 2000 MG, QD, ORAL
     Route: 048
     Dates: start: 20100829
  10. BACTRIM [Concomitant]
  11. BUTALBITAL [Concomitant]

REACTIONS (11)
  - WHITE BLOOD CELL COUNT DECREASED [None]
  - HAEMOGLOBIN DECREASED [None]
  - BLOOD ALBUMIN DECREASED [None]
  - HAEMATOCRIT DECREASED [None]
  - ALANINE AMINOTRANSFERASE INCREASED [None]
  - ABDOMINAL PAIN UPPER [None]
  - ABDOMINAL DISCOMFORT [None]
  - RED BLOOD CELL COUNT DECREASED [None]
  - BLOOD ALKALINE PHOSPHATASE INCREASED [None]
  - BLOOD GLUCOSE INCREASED [None]
  - PROTEIN TOTAL DECREASED [None]
